FAERS Safety Report 8958767 (Version 3)
Quarter: 2013Q3

REPORT INFORMATION
  Report Type: Report from Study
  Country: JP (occurrence: JP)
  Receive Date: 20121212
  Receipt Date: 20130726
  Transmission Date: 20140515
  Serious: Yes (Hospitalization, Other)
  Sender: FDA-Public Use
  Company Number: JP-009507513-1212JPN002233

PATIENT
  Age: 47 Year
  Sex: Male
  Weight: 85 kg

DRUGS (7)
  1. PEGINTRON [Suspect]
     Indication: CHRONIC HEPATITIS C
     Dosage: 1.5 MICROGRAM PER KILOGRAM, QW
     Route: 058
     Dates: start: 20120821, end: 20121016
  2. REBETOL [Suspect]
     Indication: CHRONIC HEPATITIS C
     Dosage: 100 MG, QD, CUMMULATIVE DOSE: 2000 MG
     Route: 048
     Dates: start: 20120821, end: 20120904
  3. REBETOL [Suspect]
     Dosage: 600 MG, QD, CUMMULATIVE DOSE: 2000 MG
     Route: 048
     Dates: start: 20120905, end: 20121008
  4. TELAVIC [Suspect]
     Indication: CHRONIC HEPATITIS C
     Dosage: 2250 MG, QD, CUMMULATIVE DOSE: 4500 MG
     Route: 048
     Dates: start: 20120821, end: 20121002
  5. TELAVIC [Suspect]
     Dosage: 1500 MG, QD, CUMMULATIVE DOSE: 4500 MG
     Route: 048
     Dates: start: 20121002, end: 20121008
  6. PARIET [Concomitant]
     Indication: PROPHYLAXIS
     Dosage: 10 MG, QD, FORMULATION: POR
     Route: 048
     Dates: start: 20121002, end: 20121008
  7. MYSLEE [Concomitant]
     Dosage: 10 MG, QD, FORMULATION: POR
     Route: 048
     Dates: start: 20121002, end: 20121018

REACTIONS (2)
  - Schizophrenia [Recovering/Resolving]
  - Anaemia [Recovered/Resolved]
